FAERS Safety Report 4951109-5 (Version None)
Quarter: 2006Q1

REPORT INFORMATION
  Report Type: 
  Country: None (occurrence: None)
  Receive Date: 20060322
  Receipt Date: 20050706
  Transmission Date: 20060701
  Serious: Yes (Disabling)
  Sender: FDA-Public Use
  Company Number: US-MERCK-0507USA00881

PATIENT
  Age: 50 Year
  Sex: Male
  Weight: 105 kg

DRUGS (6)
  1. VIOXX [Suspect]
     Indication: BACK PAIN
     Route: 048
     Dates: start: 20020201, end: 20040901
  2. CELEBREX [Concomitant]
     Route: 065
  3. BEXTRA [Concomitant]
     Route: 065
  4. VASOTEC RPD [Concomitant]
     Route: 048
  5. LIPITOR [Concomitant]
     Route: 065
  6. FLONASE [Concomitant]
     Route: 065

REACTIONS (3)
  - BACK DISORDER [None]
  - INJURY [None]
  - MYOCARDIAL INFARCTION [None]
